FAERS Safety Report 6034459-3 (Version None)
Quarter: 2009Q1

REPORT INFORMATION
  Report Type: 
  Country: None (occurrence: None)
  Receive Date: 20090108
  Receipt Date: 20081224
  Transmission Date: 20090719
  Serious: Yes (Hospitalization)
  Sender: FDA-Public Use
  Company Number: 110473

PATIENT
  Age: 36 Year
  Sex: Female

DRUGS (8)
  1. NAPROXEN SODIUM [Suspect]
     Dosage: ORAL
     Route: 048
  2. FLUOXETINE HYDROCHLORIDE [Concomitant]
  3. DESPIRAMINE HYDROCHLORIDE [Concomitant]
  4. GABAPENTIN [Concomitant]
  5. TIZANIDINE HYDROCHLORIDE [Concomitant]
  6. CROMOLYN SODIUM INHALER [Concomitant]
  7. NAPROXEN SODIUM [Concomitant]
  8. UV-A PHOTOTHERAPY [Concomitant]

REACTIONS (3)
  - PHOTOSENSITIVITY REACTION [None]
  - PSEUDOPORPHYRIA [None]
  - SCAR [None]
